FAERS Safety Report 14044963 (Version 2)
Quarter: 2017Q4

REPORT INFORMATION
  Report Type: Spontaneous
  Country: US (occurrence: US)
  Receive Date: 20171005
  Receipt Date: 20171005
  Transmission Date: 20180321
  Serious: No
  Sender: FDA-Public Use
  Company Number: US-INDIVIOR LIMITED-INDV-100884-2017

PATIENT
  Age: 18 Year
  Sex: Female

DRUGS (2)
  1. SUBOXONE [Suspect]
     Active Substance: BUPRENORPHINE HYDROCHLORIDE\NALOXONE HYDROCHLORIDE
     Dosage: UNK, MISSED DOSE
     Route: 060
     Dates: end: 201704
  2. SUBOXONE [Suspect]
     Active Substance: BUPRENORPHINE HYDROCHLORIDE\NALOXONE HYDROCHLORIDE
     Indication: DRUG USE DISORDER
     Dosage: 4MG, BID (BY CUTTING THE FILM IN HALF)
     Route: 060

REACTIONS (9)
  - Sluggishness [Unknown]
  - Product use issue [Unknown]
  - Product preparation error [Unknown]
  - Asthenia [Unknown]
  - Dizziness [Unknown]
  - Drug dependence [Unknown]
  - Feeling abnormal [Unknown]
  - Drug dose omission [Recovered/Resolved]
  - Fatigue [Unknown]

NARRATIVE: CASE EVENT DATE: 201704
